FAERS Safety Report 9061674 (Version 5)
Quarter: 2015Q4

REPORT INFORMATION
  Report Type: Report from Study
  Country: BR (occurrence: BR)
  Receive Date: 20130204
  Receipt Date: 20151223
  Transmission Date: 20160305
  Serious: Yes (Other)
  Sender: FDA-Public Use
  Company Number: PHHY2013BR009574

PATIENT
  Age: 65 Year
  Sex: Female
  Weight: 71 kg

DRUGS (9)
  1. ACLASTA [Suspect]
     Active Substance: ZOLEDRONIC ACID
     Indication: BONE DISORDER
  2. GALVUS [Suspect]
     Active Substance: VILDAGLIPTIN
     Indication: DIABETES MELLITUS
     Dosage: 1 TABLET, QD
     Route: 048
  3. AZUKON [Concomitant]
     Active Substance: GLICLAZIDE
     Indication: DIABETES MELLITUS
     Dosage: 1 TABLET (30 MG), QD (IN THE MORNING)
     Route: 048
  4. CODATEN [Concomitant]
     Active Substance: CODEINE PHOSPHATE\DICLOFENAC SODIUM
     Indication: SLEEP DISORDER
     Dosage: 3 TABLETS (50 MG), QD
     Route: 048
     Dates: start: 201407
  5. ACLASTA [Suspect]
     Active Substance: ZOLEDRONIC ACID
     Indication: OSTEOPOROSIS
     Dosage: 1 DF, Q12MO
     Route: 042
     Dates: start: 20121206
  6. LOSARTAN. [Concomitant]
     Active Substance: LOSARTAN
     Indication: HYPERTENSION
     Dosage: 1 TABLET (50 MG), QD
     Route: 048
  7. METFORMIN [Concomitant]
     Active Substance: METFORMIN HYDROCHLORIDE
     Indication: DIABETES MELLITUS
     Dosage: 3 TABLETS (850 MG), QD
     Route: 048
  8. DEPURA [Concomitant]
     Active Substance: CHOLECALCIFEROL
     Indication: OSTEOPOROSIS
     Dosage: 5 DRP, QD
     Route: 048
  9. ACLASTA [Suspect]
     Active Substance: ZOLEDRONIC ACID
     Indication: OSTEOPENIA

REACTIONS (16)
  - Fall [Recovered/Resolved]
  - Arthralgia [Not Recovered/Not Resolved]
  - Body height decreased [Unknown]
  - Hiatus hernia [Recovering/Resolving]
  - Blood pressure increased [Recovered/Resolved]
  - Musculoskeletal pain [Recovering/Resolving]
  - Pain in extremity [Not Recovered/Not Resolved]
  - Peripheral swelling [Recovering/Resolving]
  - Exostosis [Not Recovered/Not Resolved]
  - Thyroid disorder [Unknown]
  - Headache [Recovering/Resolving]
  - Osteoarthritis [Not Recovered/Not Resolved]
  - Pain [Recovering/Resolving]
  - Gastrooesophageal reflux disease [Unknown]
  - Chest pain [Recovered/Resolved]
  - Influenza [Recovered/Resolved]

NARRATIVE: CASE EVENT DATE: 2014
